FAERS Safety Report 25504527 (Version 1)
Quarter: 2025Q3

REPORT INFORMATION
  Report Type: Spontaneous
  Country: EU (occurrence: EU)
  Receive Date: 20250702
  Receipt Date: 20250702
  Transmission Date: 20251021
  Serious: Yes (Hospitalization)
  Sender: PFIZER
  Company Number: None

PATIENT
  Age: 75 Year
  Sex: Female

DRUGS (2)
  1. NOVATREX (METHOTREXATE) [Suspect]
     Active Substance: METHOTREXATE SODIUM
     Indication: Rheumatoid arthritis
     Dosage: 10 MG, WEEKLY
     Route: 048
     Dates: start: 20250307, end: 20250331
  2. NOVATREX (METHOTREXATE) [Suspect]
     Active Substance: METHOTREXATE SODIUM
     Dosage: 10 MG, 1X/DAY
     Route: 048
     Dates: start: 20250331, end: 20250411

REACTIONS (5)
  - Mucosal inflammation [Recovered/Resolved]
  - Mouth ulceration [Recovered/Resolved]
  - Thrombocytopenia [Recovered/Resolved]
  - Accidental overdose [Recovered/Resolved]
  - Inappropriate schedule of product administration [Recovered/Resolved]

NARRATIVE: CASE EVENT DATE: 20250301
